FAERS Safety Report 22678080 (Version 2)
Quarter: 2023Q4

REPORT INFORMATION
  Report Type: Spontaneous
  Country: US (occurrence: US)
  Receive Date: 20230706
  Receipt Date: 20231025
  Transmission Date: 20240109
  Serious: No
  Sender: FDA-Public Use
  Company Number: US-TEVA-2023-US-2898391

PATIENT
  Age: 58 Year
  Sex: Female

DRUGS (1)
  1. AJOVY [Suspect]
     Active Substance: FREMANEZUMAB-VFRM
     Indication: Migraine
     Dosage: 225 MG / 1.5 ML
     Route: 065

REACTIONS (1)
  - Therapeutic product effect incomplete [Unknown]
